FAERS Safety Report 9522940 (Version 1)
Quarter: 2013Q3

REPORT INFORMATION
  Report Type: Spontaneous
  Country: DE (occurrence: DE)
  Receive Date: 20130913
  Receipt Date: 20130913
  Transmission Date: 20140515
  Serious: Yes (Other)
  Sender: FDA-Public Use
  Company Number: DE-BAYER-2013-109152

PATIENT
  Age: 70 Year
  Sex: Male

DRUGS (2)
  1. CIPROBAY [Suspect]
     Dosage: 750 DF, UNK
  2. HEPATICUM-MEDICE [Concomitant]

REACTIONS (12)
  - Angina pectoris [Recovering/Resolving]
  - Cerebral disorder [Recovering/Resolving]
  - Arrhythmia [Recovering/Resolving]
  - Malaise [Recovering/Resolving]
  - Nausea [Recovering/Resolving]
  - Dyspnoea [Recovering/Resolving]
  - Oliguria [Recovering/Resolving]
  - Thirst [Recovering/Resolving]
  - Swelling [Recovering/Resolving]
  - Epistaxis [Recovering/Resolving]
  - Haematochezia [Recovering/Resolving]
  - Faeces discoloured [Recovering/Resolving]
